FAERS Safety Report 7398521-5 (Version None)
Quarter: 2011Q2

REPORT INFORMATION
  Report Type: 
  Country: None (occurrence: None)
  Receive Date: 20110407
  Receipt Date: 20110329
  Transmission Date: 20111010
  Serious: No
  Sender: FDA-Public Use
  Company Number: US-BIOGENIDEC-2010BI042501

PATIENT
  Sex: Female

DRUGS (10)
  1. LYRICA [Concomitant]
     Indication: MUSCULOSKELETAL PAIN
  2. GABAPENTIN [Concomitant]
     Indication: PAIN IN EXTREMITY
  3. GABAPENTIN [Concomitant]
     Indication: BACK PAIN
  4. LYRICA [Concomitant]
     Indication: BACK PAIN
  5. GABAPENTIN [Concomitant]
     Indication: MUSCULOSKELETAL PAIN
  6. TYSABRI [Suspect]
     Indication: MULTIPLE SCLEROSIS
     Route: 042
     Dates: start: 20101115
  7. AVONEX [Concomitant]
     Indication: MULTIPLE SCLEROSIS
     Route: 030
     Dates: start: 20060424
  8. GABAPENTIN [Concomitant]
     Indication: ARTHRALGIA
  9. LYRICA [Concomitant]
     Indication: PAIN IN EXTREMITY
  10. LYRICA [Concomitant]
     Indication: ARTHRALGIA

REACTIONS (11)
  - MUSCLE TIGHTNESS [None]
  - ASTHENIA [None]
  - LOSS OF CONTROL OF LEGS [None]
  - GAIT DISTURBANCE [None]
  - ARTHRALGIA [None]
  - DRUG EFFECT DECREASED [None]
  - PARAESTHESIA [None]
  - BACK PAIN [None]
  - MUSCULOSKELETAL PAIN [None]
  - MUSCULAR WEAKNESS [None]
  - PAIN IN EXTREMITY [None]
